FAERS Safety Report 10153907 (Version 1)
Quarter: 2014Q2

REPORT INFORMATION
  Report Type: Spontaneous
  Country: CN (occurrence: None)
  Receive Date: 20140502
  Receipt Date: 20140502
  Transmission Date: 20141212
  Serious: Yes (Other)
  Sender: FDA-Public Use
  Company Number: 7285348

PATIENT
  Age: 55 Year
  Sex: Female

DRUGS (1)
  1. EUTHYROX [Suspect]
     Indication: THYROIDECTOMY
     Dosage: 0.5DF (0.5DF, 1 IN 1 D)
     Route: 048
     Dates: start: 201007, end: 201308

REACTIONS (5)
  - Blood thyroid stimulating hormone increased [None]
  - Thyroxine decreased [None]
  - Thyroxine free decreased [None]
  - Tri-iodothyronine decreased [None]
  - Anti-thyroid antibody positive [None]
